FAERS Safety Report 7553650-8 (Version None)
Quarter: 2011Q2

REPORT INFORMATION
  Report Type: 
  Country: None (occurrence: None)
  Receive Date: 20110617
  Receipt Date: 20110427
  Transmission Date: 20111010
  Serious: No
  Sender: FDA-Public Use
  Company Number: US-MYLANLABS-2011S1001632

PATIENT
  Age: 64 Year
  Sex: Female
  Weight: 49.9 kg

DRUGS (7)
  1. OMEPRAZOLE [Suspect]
     Indication: GASTROOESOPHAGEAL REFLUX DISEASE
     Route: 048
     Dates: start: 20101001, end: 20101201
  2. METOPROLOL TARTRATE [Concomitant]
  3. VITAMIN TAB [Concomitant]
  4. EXFORGE [Concomitant]
  5. OMEPRAZOLE [Suspect]
     Route: 048
     Dates: start: 20101001, end: 20101201
  6. SEROQUEL [Concomitant]
  7. EFFEXOR [Concomitant]

REACTIONS (3)
  - ONYCHOCLASIS [None]
  - ALOPECIA [None]
  - DRY SKIN [None]
